FAERS Safety Report 22255283 (Version 4)
Quarter: 2025Q3

REPORT INFORMATION
  Report Type: Report from Study
  Country: EU (occurrence: EU)
  Receive Date: 20230426
  Receipt Date: 20250702
  Transmission Date: 20251020
  Serious: Yes (Death, Hospitalization)
  Sender: PFIZER
  Company Number: EU-PFM-2023-02435

PATIENT
  Sex: Male
  Weight: 69 kg

DRUGS (2)
  1. BRAFTOVI [Suspect]
     Active Substance: ENCORAFENIB
     Indication: Colorectal cancer
     Dosage: 300 MG, DAILY
     Route: 048
     Dates: start: 20221231, end: 20230413
  2. CETUXIMAB [Suspect]
     Active Substance: CETUXIMAB
     Indication: Colorectal cancer
     Dosage: 150 MG/M2, WEEKLY (FORMULATION: LIQUID )
     Route: 042
     Dates: start: 20221230, end: 20230323

REACTIONS (1)
  - General physical health deterioration [Fatal]

NARRATIVE: CASE EVENT DATE: 20230408
